FAERS Safety Report 10542197 (Version 1)
Quarter: 2014Q4

REPORT INFORMATION
  Report Type: Spontaneous
  Country: US (occurrence: None)
  Receive Date: 20141010
  Receipt Date: 20141010
  Transmission Date: 20150529
  Serious: No
  Sender: FDA-Public Use
  Company Number: 163-POMAL-14064304

PATIENT
  Age: 77 Year
  Sex: Male

DRUGS (10)
  1. CALCIUM CARBONATE(CALCIUM CARBONATE) [Concomitant]
  2. ASA ACEYTLSALICYLIC ACID) [Concomitant]
  3. CALCICTRIOL [Concomitant]
  4. AMBIEN(ZOLPIDEM TARTRATE) [Concomitant]
  5. COUMARIN [Concomitant]
     Active Substance: COUMARIN
  6. AMITRIPTYLINE HCL (AMITRIPTYLINE) [Concomitant]
  7. ACYCLOVIR(ACICLOVIR) [Concomitant]
  8. POMALYST [Suspect]
     Active Substance: POMALIDOMIDE
     Indication: PLASMA CELL MYELOMA
     Dosage: 4 MG, 21 IN 28 D, PO
     Route: 048
     Dates: start: 20130404
  9. COQ10(UBIDECARENONE) [Concomitant]
  10. CURCUMIN [Concomitant]
     Active Substance: CURCUMIN

REACTIONS (1)
  - Laboratory test abnormal [None]
